FAERS Safety Report 8421800-7 (Version None)
Quarter: 2012Q2

REPORT INFORMATION
  Report Type: 
  Country: None (occurrence: None)
  Receive Date: 20120605
  Receipt Date: 20120605
  Transmission Date: 20120825
  Serious: No
  Sender: FDA-Public Use
  Company Number: None

PATIENT
  Sex: Female
  Weight: 56.6996 kg

DRUGS (1)
  1. ALENDRONATE SODIUM [Suspect]

REACTIONS (4)
  - COUGH [None]
  - CONSTIPATION [None]
  - INFLUENZA LIKE ILLNESS [None]
  - MYALGIA [None]
